FAERS Safety Report 15028933 (Version 1)
Quarter: 2018Q2

REPORT INFORMATION
  Report Type: Report from Study
  Country: US (occurrence: US)
  Receive Date: 20180619
  Receipt Date: 20180619
  Transmission Date: 20180711
  Serious: Yes (Hospitalization)
  Sender: FDA-Public Use
  Company Number: US-SA-2018SA123412

PATIENT
  Age: 49 Year
  Sex: Male
  Weight: 96 kg

DRUGS (26)
  1. EMPAGLIFLOZIN [Suspect]
     Active Substance: EMPAGLIFLOZIN
     Dosage: UNK
  2. METFORMIN HYDROCHLORIDE. [Suspect]
     Active Substance: METFORMIN HYDROCHLORIDE
     Indication: TYPE 2 DIABETES MELLITUS
     Dosage: 2000 MG,QD
     Route: 048
     Dates: start: 20130916, end: 20180123
  3. NITROSTAT [Concomitant]
     Active Substance: NITROGLYCERIN
     Indication: PROPHYLAXIS
     Dosage: UNK UNK, PRN (TOTAL DAILY DOSE:0.4DF)
     Route: 060
     Dates: start: 20161026
  4. ENTRESTO [Concomitant]
     Active Substance: SACUBITRIL\VALSARTAN
     Dosage: 2 DF,QD
     Route: 048
     Dates: start: 20180124, end: 20180128
  5. FENOFIBRATE. [Concomitant]
     Active Substance: FENOFIBRATE
     Indication: HYPERLIPIDAEMIA
     Dosage: 135 MG,QD
     Route: 048
     Dates: start: 20180124, end: 20180128
  6. FENOFIBRATE. [Concomitant]
     Active Substance: FENOFIBRATE
     Dosage: 135 MG,QD
     Route: 048
     Dates: start: 20180207
  7. ATORVASTATIN [Concomitant]
     Active Substance: ATORVASTATIN
     Indication: HYPERLIPIDAEMIA
     Dosage: UNKNOWN (TOTAL DAILY DOSE: 40MG)
     Route: 048
     Dates: start: 20130916, end: 20180123
  8. ASPIRIN. [Concomitant]
     Active Substance: ASPIRIN
     Indication: CORONARY ARTERY DISEASE
     Dosage: UNKNOWN (TOTAL DAILY DOSE: 81MG)
     Route: 048
     Dates: start: 20130916, end: 20180123
  9. METFORMIN HYDROCHLORIDE. [Suspect]
     Active Substance: METFORMIN HYDROCHLORIDE
     Dosage: 2000 MG,QD
     Route: 048
     Dates: start: 20180207
  10. NITROSTAT [Concomitant]
     Active Substance: NITROGLYCERIN
     Dosage: UNK UNK, PRN (TOTAL DAILY DOSE: 0.4MG)
     Route: 060
     Dates: start: 20180330, end: 20180405
  11. EFFIENT [Concomitant]
     Active Substance: PRASUGREL HYDROCHLORIDE
     Dosage: UNKNOWN (TOTAL DAILY DOSE: 10MG)
     Route: 048
     Dates: start: 20180124, end: 20180128
  12. EMPAGLIFLOZIN [Suspect]
     Active Substance: EMPAGLIFLOZIN
     Dosage: 25 MG,QD
     Route: 048
     Dates: start: 20180207
  13. FISH OIL [Concomitant]
     Active Substance: FISH OIL
     Indication: PROPHYLAXIS
     Dosage: 2400 MG,QD
     Route: 048
     Dates: start: 20180207
  14. GLIMEPIRIDE. [Suspect]
     Active Substance: GLIMEPIRIDE
     Indication: TYPE 2 DIABETES MELLITUS
     Dosage: UNK UNK,QD
     Route: 058
     Dates: start: 20170524
  15. EFFIENT [Concomitant]
     Active Substance: PRASUGREL HYDROCHLORIDE
     Indication: HYPERTENSION
     Dosage: UNKNOWN (TOTAL DAILY DOSE: 10MG)
     Route: 048
     Dates: start: 20170407, end: 20180123
  16. EFFIENT [Concomitant]
     Active Substance: PRASUGREL HYDROCHLORIDE
     Dosage: UNKNOWN (TOTAL DAILY DOSE: 10MG)
     Route: 048
     Dates: start: 20180207
  17. FUROSEMIDE. [Concomitant]
     Active Substance: FUROSEMIDE
     Indication: CORONARY ARTERY DISEASE
     Dosage: 20 MG,QD
     Route: 048
     Dates: start: 20180207
  18. METOPROLOL TARTRATE. [Concomitant]
     Active Substance: METOPROLOL TARTRATE
     Dosage: UNKNOWN (TOTAL DAILY DOSE: 50MG)
     Route: 048
     Dates: start: 20180207
  19. ASPIRIN. [Concomitant]
     Active Substance: ASPIRIN
     Dosage: UNKNOWN (TOTAL DAILY DOSE: 81MG)
     Route: 048
     Dates: start: 20180207
  20. VITAMIN D3 [Concomitant]
     Active Substance: CHOLECALCIFEROL
     Indication: PROPHYLAXIS
     Dosage: 1000 U, QD
     Route: 048
     Dates: start: 20180207
  21. ATORVASTATIN [Concomitant]
     Active Substance: ATORVASTATIN
     Dosage: UNKNOWN (TOTAL DAILY DOSE: 40MG)
     Route: 048
     Dates: start: 20180207
  22. EMPAGLIFLOZIN [Suspect]
     Active Substance: EMPAGLIFLOZIN
     Indication: TYPE 2 DIABETES MELLITUS
     Dosage: 25 MG,QD
     Route: 048
     Dates: start: 20160929, end: 20180123
  23. METOPROLOL TARTRATE. [Concomitant]
     Active Substance: METOPROLOL TARTRATE
     Indication: HYPERTENSION
     Dosage: UNKNOWN (TOTAL DAILY DOSE: 50MG)
     Route: 048
     Dates: start: 20130916, end: 20180123
  24. ENTRESTO [Concomitant]
     Active Substance: SACUBITRIL\VALSARTAN
     Dosage: 2 DF,QD
     Route: 048
     Dates: start: 20180207
  25. MIDODRINE [Concomitant]
     Active Substance: MIDODRINE
     Indication: CORONARY ARTERY DISEASE
     Dosage: 15 MG,QD
     Route: 048
     Dates: start: 20180207
  26. CHANTIX [Concomitant]
     Active Substance: VARENICLINE TARTRATE
     Indication: PROPHYLAXIS
     Dosage: 1 MG,QD
     Route: 048
     Dates: start: 20180207

REACTIONS (1)
  - Acute myocardial infarction [Recovered/Resolved]

NARRATIVE: CASE EVENT DATE: 20180330
